FAERS Safety Report 6551575-8 (Version None)
Quarter: 2010Q1

REPORT INFORMATION
  Report Type: 
  Country: None (occurrence: None)
  Receive Date: 20100120
  Receipt Date: 20100111
  Transmission Date: 20100710
  Serious: Yes (Other)
  Sender: FDA-Public Use
  Company Number: GB-GDP-09406034

PATIENT
  Age: 75 Year
  Sex: Female

DRUGS (1)
  1. METRONIDAZOLE [Suspect]
     Indication: ROSACEA
     Dosage: (1 DF QD TOPICAL)
     Route: 061
     Dates: start: 20090430, end: 20090505

REACTIONS (2)
  - CONDITION AGGRAVATED [None]
  - ROSACEA [None]
